FAERS Safety Report 23653941 (Version 2)
Quarter: 2024Q2

REPORT INFORMATION
  Report Type: Spontaneous
  Country: US (occurrence: US)
  Receive Date: 20240320
  Receipt Date: 20240401
  Transmission Date: 20240716
  Serious: Yes (Hospitalization, Other)
  Sender: FDA-Public Use
  Company Number: US-TEVA-VS-3168648

PATIENT
  Age: 63 Year
  Sex: Male

DRUGS (4)
  1. TOPIRAMATE [Suspect]
     Active Substance: TOPIRAMATE
     Indication: Cluster headache
     Dosage: MAXIMUM DOSE 150 MG
     Route: 065
  2. VERAPAMIL [Suspect]
     Active Substance: VERAPAMIL HYDROCHLORIDE
     Indication: Cluster headache
     Dosage: ONCE HE REACHED A DOSE OF 640 MG/DAY
     Route: 065
  3. VERAPAMIL [Suspect]
     Active Substance: VERAPAMIL HYDROCHLORIDE
     Indication: Cluster headache
     Route: 065
  4. MELATONIN [Concomitant]
     Active Substance: MELATONIN
     Indication: Cluster headache
     Route: 065

REACTIONS (6)
  - Dyspnoea [Unknown]
  - Mood altered [Unknown]
  - Drug ineffective [Unknown]
  - Arrhythmia [Unknown]
  - Electrocardiogram change [Unknown]
  - Myocardial ischaemia [Unknown]
